FAERS Safety Report 8069978-1 (Version None)
Quarter: 2012Q1

REPORT INFORMATION
  Report Type: 
  Country: None (occurrence: None)
  Receive Date: 20120125
  Receipt Date: 20120119
  Transmission Date: 20120608
  Serious: Yes (Hospitalization, Other)
  Sender: FDA-Public Use
  Company Number: US-SANOFI-AVENTIS-2012SA004041

PATIENT
  Sex: Male

DRUGS (6)
  1. PLAVIX [Suspect]
     Route: 048
     Dates: start: 20120101
  2. VYTORIN [Suspect]
  3. ASPIRIN [Concomitant]
  4. PLAVIX [Suspect]
     Route: 048
     Dates: start: 19960101, end: 20120101
  5. LOPRESSOR [Concomitant]
  6. LIPITOR [Suspect]
     Dates: start: 19960101, end: 20101201

REACTIONS (8)
  - DIZZINESS [None]
  - FALL [None]
  - CORONARY ARTERY OCCLUSION [None]
  - HEAD INJURY [None]
  - GALLBLADDER DISORDER [None]
  - FATIGUE [None]
  - THERAPY REGIMEN CHANGED [None]
  - MUSCULOSKELETAL PAIN [None]
